FAERS Safety Report 12948894 (Version 1)
Quarter: 2016Q4

REPORT INFORMATION
  Report Type: Spontaneous
  Country: JP (occurrence: JP)
  Receive Date: 20161117
  Receipt Date: 20161117
  Transmission Date: 20170207
  Serious: Yes (Death, Other)
  Sender: FDA-Public Use
  Company Number: JP-009507513-1610JPN012415

PATIENT
  Age: 49 Year
  Sex: Female
  Weight: 48 kg

DRUGS (10)
  1. TEGRETOL [Concomitant]
     Active Substance: CARBAMAZEPINE
     Dosage: 200 MG, BID
     Route: 048
     Dates: start: 20121230, end: 20150320
  2. DECADRON [Concomitant]
     Active Substance: DEXAMETHASONE
     Dosage: 100 MG, BID
     Route: 048
     Dates: start: 20131017, end: 20150305
  3. BAKTAR [Concomitant]
     Active Substance: SULFAMETHOXAZOLE\TRIMETHOPRIM
     Dosage: TWO DIVIDED DOSES, 2 DAYS A WEEK
     Route: 048
     Dates: start: 20130118, end: 20141115
  4. E KEPPRA [Concomitant]
     Active Substance: LEVETIRACETAM
     Dosage: 250 MG, BID
     Route: 048
     Dates: start: 20131204, end: 20150320
  5. OLMESARTAN MEDOXOMIL. [Concomitant]
     Active Substance: OLMESARTAN MEDOXOMIL
     Dosage: 10 MG, QD
     Route: 048
     Dates: start: 20140910, end: 20150108
  6. AVASTIN [Concomitant]
     Active Substance: BEVACIZUMAB
     Indication: MALIGNANT GLIOMA
     Dosage: 500 MG, QD
     Route: 041
     Dates: start: 20140110, end: 20141022
  7. PARIET [Concomitant]
     Active Substance: RABEPRAZOLE SODIUM
     Dosage: 10 MG, QD
     Route: 048
     Dates: start: 20130108, end: 20150320
  8. TEMODAL [Suspect]
     Active Substance: TEMOZOLOMIDE
     Indication: MALIGNANT GLIOMA
     Dosage: 300 MG, QD
     Route: 048
     Dates: start: 20130117, end: 20141027
  9. DAI-KENCHU-TO [Concomitant]
     Active Substance: MALTOSE
     Dosage: 2.5 G, TID
     Route: 048
     Dates: start: 20130130, end: 20150120
  10. CELECOX [Concomitant]
     Active Substance: CELECOXIB
     Dosage: 100 MG, BID
     Route: 048
     Dates: start: 20131017, end: 20150305

REACTIONS (4)
  - White blood cell count decreased [Recovered/Resolved]
  - Neutrophil count decreased [Recovered/Resolved]
  - Disease progression [Fatal]
  - Bone marrow failure [Unknown]

NARRATIVE: CASE EVENT DATE: 20141105
